FAERS Safety Report 23039049 (Version 1)
Quarter: 2023Q4

REPORT INFORMATION
  Report Type: Spontaneous
  Country: DE (occurrence: DE)
  Receive Date: 20231006
  Receipt Date: 20231006
  Transmission Date: 20240109
  Serious: Yes (Other)
  Sender: FDA-Public Use
  Company Number: None

PATIENT
  Age: 41 Year
  Sex: Female
  Weight: 60 kg

DRUGS (1)
  1. MIRENA [Suspect]
     Active Substance: LEVONORGESTREL
     Indication: Ovulation pain
     Dosage: 20?G/DAY
     Route: 015
     Dates: start: 202308, end: 20230914

REACTIONS (9)
  - Meningitis [Recovered/Resolved with Sequelae]
  - Withdrawal syndrome [Recovered/Resolved with Sequelae]
  - Depression [Recovered/Resolved with Sequelae]
  - Palpitations [Recovered/Resolved with Sequelae]
  - Dizziness [Recovered/Resolved with Sequelae]
  - Mental disorder [Recovered/Resolved with Sequelae]
  - Anxiety [Recovered/Resolved with Sequelae]
  - Visual impairment [Recovered/Resolved with Sequelae]
  - Discomfort [Recovered/Resolved with Sequelae]

NARRATIVE: CASE EVENT DATE: 20230820
